FAERS Safety Report 18195356 (Version 3)
Quarter: 2021Q1

REPORT INFORMATION
  Report Type: Report from Study
  Country: JP (occurrence: JP)
  Receive Date: 20200825
  Receipt Date: 20210226
  Transmission Date: 20210419
  Serious: No
  Sender: FDA-Public Use
  Company Number: JP-ASTRAZENECA-2020SF04994

PATIENT
  Age: 76 Year
  Sex: Female

DRUGS (4)
  1. TAGRISSO [Suspect]
     Active Substance: OSIMERTINIB
     Indication: NON-SMALL CELL LUNG CANCER
     Route: 048
     Dates: start: 20190125
  2. TAGRISSO [Suspect]
     Active Substance: OSIMERTINIB
     Indication: NON-SMALL CELL LUNG CANCER
     Dosage: 40 MG EVERY OTHER DAY
     Route: 048
     Dates: start: 20190329, end: 20190514
  3. TAGRISSO [Suspect]
     Active Substance: OSIMERTINIB
     Indication: NON-SMALL CELL LUNG CANCER
     Dosage: 40 MG EVERY OTHER DAY
     Route: 048
     Dates: start: 20191029, end: 20191217
  4. TAGRISSO [Suspect]
     Active Substance: OSIMERTINIB
     Indication: NON-SMALL CELL LUNG CANCER
     Route: 048
     Dates: start: 20180906, end: 20191217

REACTIONS (5)
  - Paronychia [Unknown]
  - Stomatitis [Unknown]
  - Taste disorder [Unknown]
  - Diarrhoea [Unknown]
  - Decreased appetite [Unknown]

NARRATIVE: CASE EVENT DATE: 20181026
